FAERS Safety Report 7245284-X (Version None)
Quarter: 2011Q1

REPORT INFORMATION
  Report Type: 
  Country: None (occurrence: None)
  Receive Date: 20110126
  Receipt Date: 20100816
  Transmission Date: 20110831
  Serious: Yes (Hospitalization)
  Sender: FDA-Public Use
  Company Number: DE-JNJFOC-20110106279

PATIENT
  Age: 7 Decade
  Sex: Male

DRUGS (2)
  1. ABCIXIMAB [Suspect]
     Route: 042
  2. ABCIXIMAB [Suspect]
     Indication: MYOCARDIAL INFARCTION
     Route: 016

REACTIONS (1)
  - PERICARDIAL EFFUSION [None]
